FAERS Safety Report 5962576-2 (Version None)
Quarter: 2008Q4

REPORT INFORMATION
  Report Type: 
  Country: None (occurrence: None)
  Receive Date: 20081121
  Receipt Date: 20081111
  Transmission Date: 20090506
  Serious: Yes (Other)
  Sender: FDA-Public Use
  Company Number: JP-PFIZER INC-2008095887

PATIENT
  Age: 63 Year
  Sex: Female

DRUGS (8)
  1. VFEND [Suspect]
  2. SOLITA-T 3G [Concomitant]
  3. VANCOMYCIN [Concomitant]
  4. NEOPHYLLIN [Concomitant]
  5. FAMOTIDINE [Concomitant]
  6. PREDONINE [Concomitant]
  7. LASIX [Concomitant]
  8. SALT SOLUTIONS [Concomitant]

REACTIONS (1)
  - THROMBOSIS [None]
